FAERS Safety Report 16709676 (Version 1)
Quarter: 2019Q3

REPORT INFORMATION
  Report Type: Spontaneous
  Country: AT (occurrence: AT)
  Receive Date: 20190816
  Receipt Date: 20190816
  Transmission Date: 20191004
  Serious: Yes (Other)
  Sender: FDA-Public Use
  Company Number: PHHY2019AT187496

PATIENT
  Sex: Male

DRUGS (4)
  1. CLAVAMOX [Suspect]
     Active Substance: AMOXICILLIN\CLAVULANATE POTASSIUM
     Indication: LYME DISEASE
     Dosage: 3 DF, QD
     Route: 065
     Dates: start: 201905
  2. CLAVAMOX [Suspect]
     Active Substance: AMOXICILLIN\CLAVULANATE POTASSIUM
     Dosage: 2 DF, QD
     Route: 065
  3. CIPROMAX [Suspect]
     Active Substance: CIPROFLOXACIN HYDROCHLORIDE
     Indication: LYME DISEASE
     Dosage: UNK
     Route: 065
  4. CLAVAMOX [Suspect]
     Active Substance: AMOXICILLIN\CLAVULANATE POTASSIUM
     Dosage: 2 DF, QD
     Route: 065
     Dates: start: 201906

REACTIONS (4)
  - Relapsing fever [Unknown]
  - Cardiac discomfort [Unknown]
  - Blood pressure increased [Unknown]
  - Muscle spasms [Recovering/Resolving]
